FAERS Safety Report 9407647 (Version 1)
Quarter: 2013Q3

REPORT INFORMATION
  Report Type: Spontaneous
  Country: US (occurrence: None)
  Receive Date: 20130717
  Receipt Date: 20130717
  Transmission Date: 20140515
  Serious: Yes (Other)
  Sender: FDA-Public Use
  Company Number: None

PATIENT
  Age: 80 Year
  Sex: Female
  Weight: 86.18 kg

DRUGS (28)
  1. OXYCODONE AND ACETAMINOPHEN [Suspect]
     Indication: KNEE ARTHROPLASTY
     Route: 048
     Dates: start: 20130312, end: 20130430
  2. OXYCONTIN [Suspect]
     Route: 048
     Dates: start: 20130312, end: 20130430
  3. VERAPAMIL (SR) [Concomitant]
  4. GENERIC ALLERGRA [Concomitant]
  5. LOSARTAN [Concomitant]
  6. ADVAIR DISKUS [Concomitant]
  7. PRILOSEC [Concomitant]
  8. COMBIVENT [Concomitant]
  9. NASALNEX [Concomitant]
  10. NASALCORT [Concomitant]
  11. CITALOPRAM [Concomitant]
  12. FUROSEMIDE [Concomitant]
  13. POTASSIUM CHL [Concomitant]
  14. COQ10 [Concomitant]
  15. BEAMETHASONE VALERATE [Concomitant]
  16. NAPROXEN [Concomitant]
  17. ASPIRIN [Suspect]
  18. SUPER B COMPLEX [Concomitant]
  19. ACIDOPHILUS [Concomitant]
  20. MEGARED [Concomitant]
  21. MEGARED, OMEGA-3 KRILL OIL [Concomitant]
  22. ONO-A-DAY WOMEN^S [Concomitant]
  23. MUCINEX [Concomitant]
  24. PAIN RELIEVING CREAMS/GELS FOR ARTHRITIS PAIN [Concomitant]
  25. PREPARATION H SUPPOSITORIES [Concomitant]
  26. TRONOLANE [Concomitant]
  27. BENEFIBER [Concomitant]
  28. METAMUCIL [Concomitant]

REACTIONS (1)
  - Deafness [None]
